FAERS Safety Report 5629710-5 (Version None)
Quarter: 2008Q1

REPORT INFORMATION
  Report Type: 
  Country: None (occurrence: None)
  Receive Date: 20080214
  Receipt Date: 20080201
  Transmission Date: 20080703
  Serious: Yes (Death)
  Sender: FDA-Public Use
  Company Number: 023691

PATIENT
  Age: 54 Year
  Sex: Female

DRUGS (9)
  1. CITALOPRAM               (CITALOPRAM HYDROBROMIDE) [Suspect]
     Dosage: ORAL
     Route: 048
  2. FLUOXETINE [Suspect]
     Dosage: ORAL
     Route: 048
  3. TRAZODONE HCL            (TRAZODONE HYDROCHLORIDE) TABLET, MG [Suspect]
     Dosage: ORAL
     Route: 048
  4. DOXEPIN HCL [Suspect]
     Dosage: ORAL
     Route: 048
  5. ACETAMINOPHEN [Suspect]
     Dosage: ORAL
     Route: 048
  6. FLURAZEPAM [Suspect]
     Dosage: ORAL
     Route: 048
  7. DULOXETINE       (DULOXETINE) [Suspect]
     Dosage: ORAL
     Route: 048
  8. MONTELUKAST SODIUM [Suspect]
     Dosage: ORAL
     Route: 048
  9. FENOFIBRATE [Suspect]
     Dosage: ORAL
     Route: 048

REACTIONS (3)
  - CARDIAC ARREST [None]
  - RESPIRATORY ARREST [None]
  - SUICIDE ATTEMPT [None]
